FAERS Safety Report 10559888 (Version 2)
Quarter: 2014Q4

REPORT INFORMATION
  Report Type: Spontaneous
  Country: JP (occurrence: JP)
  Receive Date: 20141103
  Receipt Date: 20141125
  Transmission Date: 20150529
  Serious: Yes (Hospitalization)
  Sender: FDA-Public Use
  Company Number: JP-JNJFOC-20141019353

PATIENT
  Age: 65 Year
  Sex: Female
  Weight: 51 kg

DRUGS (10)
  1. LYRICA [Concomitant]
     Active Substance: PREGABALIN
     Dosage: AFTER BREAKFAST AND SUPPER
     Route: 048
  2. LOXONIN [Concomitant]
     Active Substance: LOXOPROFEN SODIUM
     Dosage: AFTER BREAKFAST, LUNCH AND SUPPER
     Route: 048
  3. TEPRENONE [Concomitant]
     Active Substance: TEPRENONE
     Dosage: AFTER BREAKFAST AND SUPPER
     Route: 048
  4. TRAMCET [Concomitant]
     Active Substance: ACETAMINOPHEN\TRAMADOL
     Indication: PAIN
     Route: 048
     Dates: start: 20140912
  5. ROHYPNOL [Concomitant]
     Active Substance: FLUNITRAZEPAM
     Route: 048
  6. SENNOSIDE [Concomitant]
     Active Substance: SENNOSIDES
     Dosage: BEFORE BED TIME
     Route: 048
  7. PARIET [Concomitant]
     Active Substance: RABEPRAZOLE SODIUM
     Dosage: BEFORE BEDTIME
     Route: 048
  8. DUROTEP MT [Suspect]
     Active Substance: FENTANYL
     Indication: PAIN
     Route: 062
     Dates: start: 20140905, end: 20140911
  9. VASOLAN [Concomitant]
     Active Substance: VERAPAMIL HYDROCHLORIDE
     Dosage: AFTER BREAKFAST AND SUPPER
     Route: 048
  10. ELIETEN [Concomitant]
     Active Substance: METOCLOPRAMIDE
     Dosage: AFTER BREAKFAST AND SUPPER
     Route: 048

REACTIONS (2)
  - Hypoaesthesia [Recovering/Resolving]
  - Decubitus ulcer [Unknown]

NARRATIVE: CASE EVENT DATE: 20140905
